FAERS Safety Report 6936130-X (Version None)
Quarter: 2010Q3

REPORT INFORMATION
  Report Type: 
  Country: None (occurrence: None)
  Receive Date: 20100819
  Receipt Date: 20100819
  Transmission Date: 20110219
  Serious: Yes (Hospitalization, Disabling)
  Sender: FDA-Public Use
  Company Number: None

PATIENT
  Age: 47 Year
  Sex: Female
  Weight: 68.9467 kg

DRUGS (5)
  1. XIFAXAN [Suspect]
     Indication: ABDOMINAL DISTENSION
     Dosage: 550 MMG. TAB LET 3 DAY PO
     Route: 048
     Dates: start: 20100714, end: 20100810
  2. XIFAXAN [Suspect]
     Indication: CONSTIPATION
     Dosage: 550 MMG. TAB LET 3 DAY PO
     Route: 048
     Dates: start: 20100714, end: 20100810
  3. XIFAXAN [Suspect]
     Indication: IRRITABLE BOWEL SYNDROME
     Dosage: 550 MMG. TAB LET 3 DAY PO
     Route: 048
     Dates: start: 20100714, end: 20100810
  4. XIFAXAN [Suspect]
     Indication: NAUSEA
     Dosage: 550 MMG. TAB LET 3 DAY PO
     Route: 048
     Dates: start: 20100714, end: 20100810
  5. FLUCONAZOLE [Concomitant]

REACTIONS (7)
  - ASTHENIA [None]
  - DEHYDRATION [None]
  - DYSPHAGIA [None]
  - GASTROINTESTINAL CANDIDIASIS [None]
  - HYPOPHAGIA [None]
  - OESOPHAGEAL CANDIDIASIS [None]
  - SCAR [None]
